FAERS Safety Report 6199323-8 (Version None)
Quarter: 2009Q2

REPORT INFORMATION
  Report Type: 
  Country: None (occurrence: None)
  Receive Date: 20090522
  Receipt Date: 20090514
  Transmission Date: 20091009
  Serious: Yes (Hospitalization)
  Sender: FDA-Public Use
  Company Number: ES-JNJFOC-20081007472

PATIENT
  Sex: Female
  Weight: 65 kg

DRUGS (38)
  1. GOLIMUMAB [Suspect]
     Route: 058
  2. GOLIMUMAB [Suspect]
     Route: 058
  3. GOLIMUMAB [Suspect]
     Route: 058
  4. GOLIMUMAB [Suspect]
     Route: 058
  5. GOLIMUMAB [Suspect]
     Route: 058
  6. GOLIMUMAB [Suspect]
     Route: 058
  7. GOLIMUMAB [Suspect]
     Route: 058
  8. GOLIMUMAB [Suspect]
     Route: 058
  9. GOLIMUMAB [Suspect]
     Route: 058
  10. GOLIMUMAB [Suspect]
     Route: 058
  11. GOLIMUMAB [Suspect]
     Route: 058
  12. GOLIMUMAB [Suspect]
     Route: 058
  13. GOLIMUMAB [Suspect]
     Route: 058
  14. GOLIMUMAB [Suspect]
     Route: 058
  15. GOLIMUMAB [Suspect]
     Route: 058
  16. GOLIMUMAB [Suspect]
     Route: 058
  17. GOLIMUMAB [Suspect]
     Route: 058
  18. GOLIMUMAB [Suspect]
     Route: 058
  19. GOLIMUMAB [Suspect]
     Route: 058
  20. GOLIMUMAB [Suspect]
     Route: 058
  21. GOLIMUMAB [Suspect]
     Indication: RHEUMATOID ARTHRITIS
     Route: 058
  22. OMEPRAZOLE [Concomitant]
     Route: 048
  23. SINTROM [Concomitant]
     Route: 048
  24. URBASON [Concomitant]
     Route: 048
  25. ZARATOR [Concomitant]
     Route: 048
  26. ACTONEL [Concomitant]
     Route: 048
  27. DIGOXIN [Concomitant]
     Route: 048
  28. METHOTREXATE [Concomitant]
     Route: 048
  29. FOLIC ACID [Concomitant]
     Route: 048
  30. TRAMADOL HCL [Concomitant]
     Route: 048
  31. CODEISAN [Concomitant]
     Route: 048
  32. COZAAR [Concomitant]
     Route: 048
  33. PARACETAMOL [Concomitant]
     Route: 048
  34. COLIRCUSI GENTADEXA [Concomitant]
     Route: 047
  35. BOI-K ASPARTICO [Concomitant]
     Route: 048
  36. CELESTONE SOLUSPAN [Concomitant]
     Route: 030
  37. DACROLUX [Concomitant]
     Route: 047
  38. NOLOTIL [Concomitant]
     Route: 048

REACTIONS (6)
  - ABDOMINAL ABSCESS [None]
  - EXTRADURAL ABSCESS [None]
  - INTERVERTEBRAL DISCITIS [None]
  - SPLENECTOMY [None]
  - SPLENIC ARTERY ANEURYSM [None]
  - STAPHYLOCOCCAL BACTERAEMIA [None]
